FAERS Safety Report 23907628 (Version 1)
Quarter: 2024Q2

REPORT INFORMATION
  Report Type: Spontaneous
  Country: CA (occurrence: CA)
  Receive Date: 20240528
  Receipt Date: 20240528
  Transmission Date: 20240715
  Serious: Yes (Other)
  Sender: FDA-Public Use
  Company Number: CA-AUROBINDO-AUR-APL-2024-025282

PATIENT
  Age: 33 Year
  Sex: Female
  Weight: 151 kg

DRUGS (3)
  1. METHOTREXATE [Suspect]
     Active Substance: METHOTREXATE
     Indication: Uveitis
     Dosage: 1 DOSAGE FORM
     Route: 065
  2. PREDNISONE [Concomitant]
     Active Substance: PREDNISONE
     Indication: Product used for unknown indication
     Dosage: 5 MILLIGRAM, AS NECESSARY
     Route: 065
  3. PREDNISONE [Concomitant]
     Active Substance: PREDNISONE
     Dosage: 8 MILLIGRAM, ONCE A DAY
     Route: 065

REACTIONS (4)
  - Lethargy [Unknown]
  - Nausea [Unknown]
  - Drug ineffective for unapproved indication [Unknown]
  - Off label use [Unknown]
